FAERS Safety Report 11959415 (Version 1)
Quarter: 2016Q1

REPORT INFORMATION
  Report Type: Spontaneous
  Country: IT (occurrence: IT)
  Receive Date: 20160126
  Receipt Date: 20160126
  Transmission Date: 20160526
  Serious: Yes (Death, Hospitalization, Other)
  Sender: FDA-Public Use
  Company Number: IT-ROCHE-1665851

PATIENT
  Age: 76 Year
  Sex: Male

DRUGS (7)
  1. OMNIC [Concomitant]
     Active Substance: TAMSULOSIN HYDROCHLORIDE
  2. LASIX [Concomitant]
     Active Substance: FUROSEMIDE
  3. CLENIL (ITALY) [Concomitant]
  4. XOLAIR [Suspect]
     Active Substance: OMALIZUMAB
     Indication: ASTHMA
     Route: 058
     Dates: start: 20080428, end: 20150826
  5. ALIFLUS [Concomitant]
     Active Substance: FLUTICASONE PROPIONATE\SALMETEROL XINAFOATE
     Dosage: 50/250 OT
     Route: 065
  6. ATEM [Concomitant]
     Active Substance: IPRATROPIUM BROMIDE
  7. BRONCOVALEAS [Concomitant]
     Active Substance: ALBUTEROL

REACTIONS (6)
  - Metastases to bone [Unknown]
  - Metastases to stomach [Unknown]
  - Metastases to soft tissue [Unknown]
  - Adenocarcinoma gastric [Not Recovered/Not Resolved]
  - Death [Fatal]
  - Metastatic neoplasm [Not Recovered/Not Resolved]

NARRATIVE: CASE EVENT DATE: 20150925
